FAERS Safety Report 10048851 (Version 2)
Quarter: 2014Q3

REPORT INFORMATION
  Report Type: Spontaneous
  Country: US (occurrence: US)
  Receive Date: 20140331
  Receipt Date: 20140709
  Transmission Date: 20150326
  Serious: Yes (Other)
  Sender: FDA-Public Use
  Company Number: US-ABBVIE-14P-163-1216726-00

PATIENT
  Age: 60 Year
  Sex: Male

DRUGS (2)
  1. TESTIM [Suspect]
     Active Substance: TESTOSTERONE
     Indication: BLOOD TESTOSTERONE DECREASED
  2. ANDROGEL [Suspect]
     Active Substance: TESTOSTERONE
     Indication: BLOOD TESTOSTERONE DECREASED
     Route: 061

REACTIONS (10)
  - Anxiety [Unknown]
  - Cardiomyopathy [Unknown]
  - Pain [Unknown]
  - Anhedonia [Unknown]
  - Physical disability [Unknown]
  - Economic problem [Unknown]
  - Ventricular dysfunction [Unknown]
  - Fear [Unknown]
  - Social problem [Unknown]
  - Coronary artery disease [Unknown]
